FAERS Safety Report 11648486 (Version 1)
Quarter: 2015Q4

REPORT INFORMATION
  Report Type: Spontaneous
  Country: US (occurrence: US)
  Receive Date: 20151021
  Receipt Date: 20151021
  Transmission Date: 20160304
  Serious: No
  Sender: FDA-Public Use
  Company Number: US-VIIV HEALTHCARE LIMITED-US2015148975

PATIENT
  Age: 46 Year
  Sex: Female

DRUGS (30)
  1. ARTIFICIAL TEARS [Concomitant]
     Active Substance: GLYCERIN\HYPROMELLOSES\POLYETHYLENE GLYCOL 400
  2. LISINOPRIL. [Concomitant]
     Active Substance: LISINOPRIL
  3. VITAMIN D [Concomitant]
     Active Substance: CHOLECALCIFEROL
  4. BACID [Concomitant]
     Active Substance: LACTOBACILLUS ACIDOPHILUS
  5. CALCIUM [Concomitant]
     Active Substance: CALCIUM
  6. MILK OF MAGNESIA [Concomitant]
     Active Substance: MAGNESIUM HYDROXIDE
  7. PHOSPHATE ENEMA [Concomitant]
  8. TRIUMEQ [Suspect]
     Active Substance: ABACAVIR SULFATE\DOLUTEGRAVIR SODIUM\LAMIVUDINE
     Dosage: 2 DF, QD
     Dates: start: 20151018
  9. BENZTROPINE [Concomitant]
     Active Substance: BENZTROPINE
  10. BISACODYL. [Concomitant]
     Active Substance: BISACODYL
  11. PROPRANOLOL [Concomitant]
     Active Substance: PROPRANOLOL\PROPRANOLOL HYDROCHLORIDE
  12. TRIUMEQ [Suspect]
     Active Substance: ABACAVIR SULFATE\DOLUTEGRAVIR SODIUM\LAMIVUDINE
     Indication: HIV INFECTION
     Dosage: 1 DF, QD
     Route: 048
  13. AMMONIUM LACTATE CREAM 12% [Concomitant]
     Active Substance: AMMONIUM LACTATE
  14. DOCUSATE [Concomitant]
     Active Substance: DOCUSATE
  15. GLUCOSE [Concomitant]
     Active Substance: DEXTROSE
  16. POLYETHYLENE GLYCOL [Concomitant]
     Active Substance: POLYETHYLENE GLYCOLS
  17. SENSODYNE TOOTHPASTE [Concomitant]
  18. CRESTOR [Concomitant]
     Active Substance: ROSUVASTATIN CALCIUM
  19. HUMULIN NOS [Concomitant]
     Active Substance: INSULIN HUMAN
  20. MELATONIN [Concomitant]
     Active Substance: MELATONIN
  21. THERA GESIC CREAM [Concomitant]
  22. TRIPLE ANTIBIOTIC OINTMENT (BACITRACIN ZINC/GRAMICIDIN/POLYMYXIN B SUL [Concomitant]
  23. ACETAMINOPHEN. [Concomitant]
     Active Substance: ACETAMINOPHEN
  24. DIVALPROEX [Concomitant]
     Active Substance: DIVALPROEX SODIUM
  25. NIASPAN [Concomitant]
     Active Substance: NIACIN
  26. OMEGA FISH OIL [Concomitant]
     Active Substance: FISH OIL\OMEGA-3 FATTY ACIDS
  27. FLUPHENAZINE DECANOATE. [Concomitant]
     Active Substance: FLUPHENAZINE DECANOATE
  28. MYLANTA [Concomitant]
     Active Substance: ALUMINUM HYDROXIDE\DIMETHICONE\MAGNESIUM HYDROXIDE
  29. VITAMIN D3 [Concomitant]
     Active Substance: CHOLECALCIFEROL
  30. OLANZAPINE. [Concomitant]
     Active Substance: OLANZAPINE

REACTIONS (1)
  - Overdose [Unknown]

NARRATIVE: CASE EVENT DATE: 20151018
